FAERS Safety Report 7122958-2 (Version None)
Quarter: 2010Q4

REPORT INFORMATION
  Report Type: 
  Country: None (occurrence: None)
  Receive Date: 20101124
  Receipt Date: 20101115
  Transmission Date: 20110411
  Serious: Yes (Death)
  Sender: FDA-Public Use
  Company Number: IT-GENENTECH-309998

PATIENT
  Sex: Male

DRUGS (10)
  1. MABTHERA [Suspect]
     Indication: TRANSPLANT REJECTION
     Dosage: 375 A?G/M2, UNK
     Route: 017
     Dates: start: 20100619, end: 20100714
  2. MABTHERA [Suspect]
     Dosage: UNK
     Route: 017
  3. SOLIRIS [Suspect]
     Indication: THROMBOTIC MICROANGIOPATHY
     Dosage: 1200 MG, UNK
     Route: 042
     Dates: start: 20100805, end: 20101014
  4. PREDNISOLONE [Concomitant]
     Indication: PRODUCT USED FOR UNKNOWN INDICATION
     Dosage: 1 A?G/KG, UNK
  5. AMPHOTERICIN B [Concomitant]
     Indication: PRODUCT USED FOR UNKNOWN INDICATION
     Dosage: UNK
  6. ACETYLSALICYLIC ACID [Concomitant]
     Indication: PRODUCT USED FOR UNKNOWN INDICATION
     Dosage: UNK
  7. CERTICAN [Concomitant]
     Indication: PRODUCT USED FOR UNKNOWN INDICATION
     Dosage: UNK
  8. CANCIDAS [Concomitant]
     Indication: PRODUCT USED FOR UNKNOWN INDICATION
     Dosage: UNK
  9. VALGANCICLOVIR HCL [Concomitant]
     Indication: PRODUCT USED FOR UNKNOWN INDICATION
     Dosage: UNK
  10. CELLCEPT [Concomitant]
     Indication: PRODUCT USED FOR UNKNOWN INDICATION
     Dosage: UNK

REACTIONS (2)
  - CEREBROVASCULAR ACCIDENT [None]
  - SEPSIS [None]
